FAERS Safety Report 14200187 (Version 4)
Quarter: 2018Q2

REPORT INFORMATION
  Report Type: Spontaneous
  Country: JP (occurrence: JP)
  Receive Date: 20171117
  Receipt Date: 20180424
  Transmission Date: 20180711
  Serious: Yes (Life-Threatening, Other)
  Sender: FDA-Public Use
  Company Number: JP-JNJFOC-20171117368

PATIENT
  Age: 70 Year
  Sex: Male
  Weight: 107 kg

DRUGS (14)
  1. RISPERDAL [Suspect]
     Active Substance: RISPERIDONE
     Indication: DISINHIBITION
     Dosage: 3 ML TO 4 ML 1 TIME,1 OR 2 TIMES PER DAY
     Route: 048
     Dates: start: 20170417, end: 20170420
  2. RISPERDAL [Suspect]
     Active Substance: RISPERIDONE
     Indication: DEMENTIA
     Dosage: 1 ML 1 TIME, 1-2 TIMES PER DAY
     Route: 048
     Dates: start: 20170407, end: 201704
  3. LEVOTHYROXINE SODIUM. [Concomitant]
     Active Substance: LEVOTHYROXINE SODIUM
     Route: 065
  4. RISPERDAL [Suspect]
     Active Substance: RISPERIDONE
     Indication: DELIRIUM
     Dosage: 1 ML 1 TIME, 1-2 TIMES PER DAY
     Route: 048
     Dates: start: 20170407, end: 201704
  5. RISPERDAL [Suspect]
     Active Substance: RISPERIDONE
     Indication: DEMENTIA
     Dosage: 3 ML TO 4 ML 1 TIME,1 OR 2 TIMES PER DAY
     Route: 048
     Dates: start: 20170417, end: 20170420
  6. RISPERDAL [Suspect]
     Active Substance: RISPERIDONE
     Indication: DISINHIBITION
     Dosage: 1 ML 1 TIME, 1-2 TIMES PER DAY
     Route: 048
     Dates: start: 20170407, end: 201704
  7. RISPERDAL [Suspect]
     Active Substance: RISPERIDONE
     Indication: DELIRIUM
     Route: 048
  8. RISPERDAL [Suspect]
     Active Substance: RISPERIDONE
     Indication: DEMENTIA
     Dosage: 1 ML 1 TIME, 1-2 TIMES PER DAY
     Route: 048
     Dates: start: 20170411, end: 20170416
  9. RISPERDAL [Suspect]
     Active Substance: RISPERIDONE
     Indication: DISINHIBITION
     Route: 048
  10. RISPERDAL [Suspect]
     Active Substance: RISPERIDONE
     Indication: DEMENTIA
     Route: 048
  11. LEVOTHYROXINE SODIUM. [Concomitant]
     Active Substance: LEVOTHYROXINE SODIUM
     Route: 065
  12. RISPERDAL [Suspect]
     Active Substance: RISPERIDONE
     Indication: DELIRIUM
     Dosage: 1 ML 1 TIME, 1-2 TIMES PER DAY
     Route: 048
     Dates: start: 20170411, end: 20170416
  13. RISPERDAL [Suspect]
     Active Substance: RISPERIDONE
     Indication: DISINHIBITION
     Dosage: 1 ML 1 TIME, 1-2 TIMES PER DAY
     Route: 048
     Dates: start: 20170411, end: 20170416
  14. RISPERDAL [Suspect]
     Active Substance: RISPERIDONE
     Indication: DELIRIUM
     Dosage: 3 ML TO 4 ML 1 TIME,1 OR 2 TIMES PER DAY
     Route: 048
     Dates: start: 20170417, end: 20170420

REACTIONS (6)
  - Pneumonia [Recovered/Resolved]
  - Cardio-respiratory arrest [Recovered/Resolved]
  - Myxoedema coma [Recovered/Resolved]
  - Off label use [Unknown]
  - Product use in unapproved indication [Unknown]
  - Inappropriate schedule of drug administration [Unknown]

NARRATIVE: CASE EVENT DATE: 20170407
